FAERS Safety Report 4393378-9 (Version None)
Quarter: 2004Q3

REPORT INFORMATION
  Report Type: 
  Country: None (occurrence: None)
  Receive Date: 20040707
  Receipt Date: 20040707
  Transmission Date: 20050211
  Serious: Yes (Other)
  Sender: FDA-Public Use
  Company Number: None

PATIENT
  Age: 41 Year
  Sex: Female
  Weight: 43.0917 kg

DRUGS (2)
  1. ZOLOFT [Suspect]
     Indication: DEPRESSION
     Dosage: 1 DAILY
     Dates: start: 20040207, end: 20040419
  2. ZOLOFT [Suspect]
     Indication: STRESS SYMPTOMS
     Dosage: 1 DAILY
     Dates: start: 20040207, end: 20040419

REACTIONS (7)
  - AGITATION [None]
  - CHEST DISCOMFORT [None]
  - DIARRHOEA [None]
  - DISTURBANCE IN ATTENTION [None]
  - HYPOAESTHESIA [None]
  - NERVOUSNESS [None]
  - WEIGHT DECREASED [None]
